FAERS Safety Report 22645472 (Version 2)
Quarter: 2024Q2

REPORT INFORMATION
  Report Type: Spontaneous
  Country: NL (occurrence: NL)
  Receive Date: 20230627
  Receipt Date: 20240521
  Transmission Date: 20240716
  Serious: Yes (Hospitalization)
  Sender: FDA-Public Use
  Company Number: NL-SUN PHARMACEUTICAL INDUSTRIES LTD-2023RR-395922

PATIENT
  Sex: Male
  Weight: 70 kg

DRUGS (3)
  1. ESOMEPRAZOLE [Suspect]
     Active Substance: ESOMEPRAZOLE
     Indication: Abdominal discomfort
     Dosage: GASTRO-RESISTANT CAPSULE, 40 MG (MILLIGRAM),
     Route: 065
     Dates: start: 20230131, end: 20230317
  2. IPILIMUMAB [Suspect]
     Active Substance: IPILIMUMAB
     Indication: Renal cell carcinoma
     Dosage: SOLUTION FOR INFUSION, 5 MG/ML (MILLIGRAMS PER MILLILITER)
     Route: 065
     Dates: start: 20230227, end: 20230227
  3. NIVOLUMAB [Suspect]
     Active Substance: NIVOLUMAB
     Indication: Renal cell carcinoma
     Dosage: INFUSION, 1 MG/MG (MILLIGRAM PER MILLIGRAM)
     Route: 065
     Dates: start: 20230227, end: 20230227

REACTIONS (1)
  - SJS-TEN overlap [Recovering/Resolving]
